FAERS Safety Report 5944922-9 (Version None)
Quarter: 2008Q4

REPORT INFORMATION
  Report Type: 
  Country: None (occurrence: None)
  Receive Date: 20081107
  Receipt Date: 20081028
  Transmission Date: 20090506
  Serious: Yes (Life-Threatening, Hospitalization)
  Sender: FDA-Public Use
  Company Number: HK-SANOFI-SYNTHELABO-F01200801648

PATIENT
  Sex: Female

DRUGS (5)
  1. PYRIDOXINE HCL [Concomitant]
     Dates: start: 20081006, end: 20081009
  2. NAPROSYN [Concomitant]
     Dates: start: 20081006, end: 20081009
  3. PEPCIDIN [Concomitant]
     Dates: start: 20081006, end: 20081009
  4. CAPECITABINE [Suspect]
     Dosage: DAILY FROM D1 TO D14
     Route: 048
     Dates: start: 20080929, end: 20081009
  5. OXALIPLATIN [Suspect]
     Route: 042
     Dates: start: 20080929, end: 20080929

REACTIONS (1)
  - PANCYTOPENIA [None]
